FAERS Safety Report 18541729 (Version 2)
Quarter: 2021Q1

REPORT INFORMATION
  Report Type: Spontaneous
  Country: US (occurrence: US)
  Receive Date: 20201124
  Receipt Date: 20210106
  Transmission Date: 20210419
  Serious: No
  Sender: FDA-Public Use
  Company Number: US-PFIZER INC-2020455772

PATIENT
  Age: 16 Year
  Sex: Female
  Weight: 80 kg

DRUGS (3)
  1. GENOTROPIN [Suspect]
     Active Substance: SOMATROPIN
     Indication: TURNER^S SYNDROME
     Dosage: 2.2 MG
     Route: 030
  2. ALLERTEC [Concomitant]
     Active Substance: CETIRIZINE HYDROCHLORIDE
     Indication: HYPERSENSITIVITY
     Dosage: 10 MG, 1X/DAY
  3. ESTROGEN [Concomitant]
     Active Substance: ESTROGENS
     Dosage: UNK

REACTIONS (6)
  - Off label use [Unknown]
  - Product use issue [Unknown]
  - Drug dose omission by device [Unknown]
  - Device mechanical issue [Unknown]
  - Device power source issue [Unknown]
  - Expired device used [Unknown]
